FAERS Safety Report 10101870 (Version 1)
Quarter: 2014Q2

REPORT INFORMATION
  Report Type: Spontaneous
  Country: US (occurrence: None)
  Receive Date: 20140423
  Receipt Date: 20140423
  Transmission Date: 20141212
  Serious: Yes (Disabling, Other)
  Sender: FDA-Public Use
  Company Number: None

PATIENT
  Age: 60 Year
  Sex: Female
  Weight: 55.79 kg

DRUGS (7)
  1. LYRICA [Suspect]
     Indication: EPILEPSY
     Dosage: 50 MG, 1X2, 1 A.M. 1P.M., MOUTH
     Route: 048
     Dates: start: 20140330
  2. LYRICA 50 MG [Concomitant]
  3. LAMOTRIGINE [Concomitant]
  4. LEVETIRACETAM 750 MG [Concomitant]
  5. FISH OIL CAPSULES [Concomitant]
  6. ECTROM 81 MG [Concomitant]
  7. COQ 10 [Concomitant]

REACTIONS (22)
  - Convulsion [None]
  - Suicidal ideation [None]
  - Vision blurred [None]
  - Blindness transient [None]
  - Eyelid oedema [None]
  - Eye disorder [None]
  - Pruritus [None]
  - Somnolence [None]
  - Dizziness [None]
  - Contusion [None]
  - Constipation [None]
  - Dry mouth [None]
  - Oropharyngeal pain [None]
  - Insomnia [None]
  - Depression [None]
  - Weight increased [None]
  - Skin exfoliation [None]
  - Dysuria [None]
  - Gait disturbance [None]
  - Nervousness [None]
  - Nightmare [None]
  - Flatulence [None]
